FAERS Safety Report 4480142-5 (Version None)
Quarter: 2004Q4

REPORT INFORMATION
  Report Type: 
  Country: None (occurrence: None)
  Receive Date: 20041018
  Receipt Date: 20041004
  Transmission Date: 20050328
  Serious: Yes (Hospitalization)
  Sender: FDA-Public Use
  Company Number: FABR-10830

PATIENT
  Age: 52 Year
  Sex: Male
  Weight: 70 kg

DRUGS (10)
  1. FABRAZYME [Suspect]
     Indication: FABRY'S DISEASE
     Dosage: 70 MG Q2WKS IV
     Route: 042
     Dates: start: 20031015, end: 20040929
  2. PREDNISOLONE [Concomitant]
  3. RAMIPRIL [Concomitant]
  4. TRIMETAZIDINE [Concomitant]
  5. PRAVASTATIN [Concomitant]
  6. OMEPRAZOLE [Concomitant]
  7. CALCIUM [Concomitant]
  8. SULFATE FERREUX [Concomitant]
  9. RISEDRONATE [Concomitant]
  10. FLUINDIONE [Concomitant]

REACTIONS (3)
  - CHILLS [None]
  - PAIN IN EXTREMITY [None]
  - TREMOR [None]
